FAERS Safety Report 4349984-0 (Version None)
Quarter: 2004Q2

REPORT INFORMATION
  Report Type: 
  Country: None (occurrence: None)
  Receive Date: 20040428
  Receipt Date: 20040428
  Transmission Date: 20050107
  Serious: Yes (Hospitalization)
  Sender: FDA-Public Use
  Company Number: None

PATIENT
  Sex: Male

DRUGS (21)
  1. MORPHINE [Suspect]
     Indication: POST PROCEDURAL PAIN
     Dates: start: 20040220, end: 20040223
  2. ALOPURINOL [Concomitant]
  3. AMIODARONE [Concomitant]
  4. BISACODYL [Concomitant]
  5. CLINDAMYCIN HCL [Concomitant]
  6. DOCUSATE [Concomitant]
  7. FERROUS SULFATE TAB [Concomitant]
  8. FOLIC ACID [Concomitant]
  9. FUROSEMIDE [Concomitant]
  10. GLYBURIDE [Concomitant]
  11. HEPARIN [Concomitant]
  12. ISOSORBIDE DINITRATE [Concomitant]
  13. LISINOPRIL [Concomitant]
  14. METOPROLOL SUCCINATE [Concomitant]
  15. OMEPRAZOLE [Concomitant]
  16. THIAMINE [Concomitant]
  17. LACTULOSE [Concomitant]
  18. METOCLOPRAMIDE [Concomitant]
  19. WARFARIN [Concomitant]
  20. INSULIN [Concomitant]
  21. PROPOXYPHENE/APAP [Concomitant]

REACTIONS (2)
  - DEPRESSED LEVEL OF CONSCIOUSNESS [None]
  - OXYGEN SATURATION DECREASED [None]
